FAERS Safety Report 22058942 (Version 1)
Quarter: 2023Q1

REPORT INFORMATION
  Report Type: Spontaneous
  Country: TR (occurrence: TR)
  Receive Date: 20230303
  Receipt Date: 20230303
  Transmission Date: 20230417
  Serious: Yes (Hospitalization)
  Sender: FDA-Public Use
  Company Number: TR-TASMAN PHARMA, INC.-2023TSM00069

PATIENT
  Age: 43 Year
  Sex: Male

DRUGS (11)
  1. CLOZAPINE [Suspect]
     Active Substance: CLOZAPINE
     Indication: Schizophrenia
     Dosage: 600 MG, 1X/DAY
  2. CLOZAPINE [Suspect]
     Active Substance: CLOZAPINE
     Dosage: UNSPECIFIED INCREASE
  3. CLOZAPINE [Suspect]
     Active Substance: CLOZAPINE
     Dosage: 900 MG, 1X/DAY
  4. CLOZAPINE [Suspect]
     Active Substance: CLOZAPINE
     Dosage: 600 MG, 1X/DAY
  5. CLOZAPINE [Suspect]
     Active Substance: CLOZAPINE
     Dosage: 300 MG, 1X/DAY
  6. CLOZAPINE [Suspect]
     Active Substance: CLOZAPINE
     Dosage: 600 MG, 1X/DAY
  7. SULPIRIDE [Concomitant]
     Active Substance: SULPIRIDE
  8. RISPERIDONE [Concomitant]
     Active Substance: RISPERIDONE
  9. OLANZAPINE [Concomitant]
     Active Substance: OLANZAPINE
  10. ARIPIPRAZOLE [Concomitant]
     Active Substance: ARIPIPRAZOLE
  11. VENLAFAXINE [Concomitant]
     Active Substance: VENLAFAXINE HYDROCHLORIDE
     Dosage: 150 MG, 1X/DAY

REACTIONS (1)
  - Hodgkin^s disease [Recovered/Resolved]
